FAERS Safety Report 22638947 (Version 2)
Quarter: 2025Q3

REPORT INFORMATION
  Report Type: Spontaneous
  Country: EG (occurrence: EG)
  Receive Date: 20230626
  Receipt Date: 20250728
  Transmission Date: 20251020
  Serious: Yes (Other)
  Sender: AMGEN
  Company Number: EG-AMGEN-EGYSP2023106798

PATIENT
  Age: 66 Year
  Sex: Female

DRUGS (2)
  1. XGEVA [Suspect]
     Active Substance: DENOSUMAB
     Indication: Osteoporosis
     Dosage: UNK UNK, QMO
     Route: 065
     Dates: start: 202208, end: 202306
  2. XGEVA [Suspect]
     Active Substance: DENOSUMAB
     Indication: Osteopenia

REACTIONS (4)
  - Tracheal calcification [Unknown]
  - Bronchial disorder [Unknown]
  - Cough [Unknown]
  - Off label use [Unknown]

NARRATIVE: CASE EVENT DATE: 20220801
